FAERS Safety Report 10172667 (Version 1)
Quarter: 2014Q2

REPORT INFORMATION
  Report Type: Spontaneous
  Country: GB (occurrence: GB)
  Receive Date: 20140515
  Receipt Date: 20140515
  Transmission Date: 20141212
  Serious: Yes (Disabling)
  Sender: FDA-Public Use
  Company Number: GB-BRISTOL-MYERS SQUIBB COMPANY-20712899

PATIENT
  Age: 84 Year
  Sex: Female

DRUGS (10)
  1. APIXABAN [Suspect]
     Indication: ATRIAL FIBRILLATION
     Dates: start: 20140405, end: 20140417
  2. BUMETANIDE [Concomitant]
  3. CALCEOS [Concomitant]
  4. DIGOXIN [Concomitant]
  5. LANSOPRAZOLE [Concomitant]
  6. NICORANDIL [Concomitant]
  7. QUININE [Concomitant]
  8. SPIRONOLACTONE [Concomitant]
  9. VERAPAMIL [Concomitant]
  10. CO-BENELDOPA [Concomitant]

REACTIONS (2)
  - Diarrhoea [Recovered/Resolved]
  - Fluid imbalance [Unknown]
